FAERS Safety Report 7227926-8 (Version None)
Quarter: 2011Q1

REPORT INFORMATION
  Report Type: 
  Country: None (occurrence: None)
  Receive Date: 20110114
  Receipt Date: 20110111
  Transmission Date: 20110831
  Serious: Yes (Life-Threatening, Hospitalization)
  Sender: FDA-Public Use
  Company Number: DE-PFIZER INC-2011007415

PATIENT
  Age: 63 Year
  Sex: Female
  Weight: 80 kg

DRUGS (9)
  1. ALLOPURINOL [Concomitant]
     Dosage: 300 MG, 1X/DAY
  2. PANTOZOL [Concomitant]
     Dosage: 20 MG, 2X/DAY
  3. PEPSIN-WEIN [Concomitant]
     Dosage: 20 ML, 3X/DAY
  4. ZYVOX [Suspect]
     Indication: CHOLANGITIS
     Dosage: 600 MG, 2X/DAY
     Route: 048
     Dates: start: 20101201, end: 20110101
  5. UDC [Concomitant]
     Dosage: 250 MG, 3X/DAY
  6. CITALOPRAM [Concomitant]
     Dosage: 10 MG, 1X/DAY
  7. OBSIDAN [Concomitant]
     Dosage: 25 MG, 1X/DAY
  8. CIPRO [Concomitant]
     Indication: HEPATIC CYST INFECTION
     Dosage: UNK
     Dates: start: 20101101
  9. TOREM [Concomitant]
     Dosage: 10 MG, 1X/DAY

REACTIONS (7)
  - RENAL FAILURE ACUTE [None]
  - DIARRHOEA [None]
  - ACUTE HEPATIC FAILURE [None]
  - STOMATITIS [None]
  - SEPSIS [None]
  - PANCYTOPENIA [None]
  - GENERAL PHYSICAL HEALTH DETERIORATION [None]
